FAERS Safety Report 21332321 (Version 2)
Quarter: 2022Q3

REPORT INFORMATION
  Report Type: Report from Study
  Country: EG (occurrence: EG)
  Receive Date: 20220914
  Receipt Date: 20220916
  Transmission Date: 20221027
  Serious: Yes (Other)
  Sender: FDA-Public Use
  Company Number: EG-NOVARTISPH-NVSC2022EG204997

PATIENT
  Age: 4 Year
  Sex: Male

DRUGS (1)
  1. OMNITROPE [Suspect]
     Active Substance: SOMATROPIN
     Indication: Growth hormone deficiency
     Dosage: 0.5 MG, QD (STOP DATE DETAILS GIVEN AS 40 DAYS AGO)
     Route: 058
     Dates: start: 20220102, end: 20220730

REACTIONS (5)
  - Weight decreased [Not Recovered/Not Resolved]
  - Product quality issue [Unknown]
  - Needle issue [Unknown]
  - Product availability issue [Unknown]
  - Wrong technique in product usage process [Not Recovered/Not Resolved]

NARRATIVE: CASE EVENT DATE: 20220102
